FAERS Safety Report 22586052 (Version 1)
Quarter: 2023Q2

REPORT INFORMATION
  Report Type: Spontaneous
  Country: FR (occurrence: FR)
  Receive Date: 20230610
  Receipt Date: 20230610
  Transmission Date: 20230722
  Serious: Yes (Other)
  Sender: FDA-Public Use
  Company Number: None

PATIENT
  Age: 75 Year
  Sex: Female
  Weight: 82 kg

DRUGS (2)
  1. MONTELUKAST [Suspect]
     Active Substance: MONTELUKAST SODIUM
     Indication: Asthma
     Dosage: YEARS
     Route: 065
  2. DULOXETINE [Suspect]
     Active Substance: DULOXETINE
     Indication: Mixed anxiety and depressive disorder
     Dosage: STRENGTH: 30 MG, UNIT DOSE: 1DF, FREQUENCY TIME: 1 DAYS, DURATION: 78 DAYS
     Route: 065
     Dates: start: 20230123, end: 20230411

REACTIONS (2)
  - Hypnagogic hallucination [Recovered/Resolved]
  - Hypnopompic hallucination [Recovered/Resolved]

NARRATIVE: CASE EVENT DATE: 20230130
